FAERS Safety Report 10154820 (Version 2)
Quarter: 2017Q4

REPORT INFORMATION
  Report Type: Spontaneous
  Country: US (occurrence: US)
  Receive Date: 20140506
  Receipt Date: 20171109
  Transmission Date: 20180320
  Serious: Yes (Other)
  Sender: FDA-Public Use
  Company Number: US-PFIZER INC-2014121600

PATIENT
  Age: 6 Week
  Sex: Female

DRUGS (1)
  1. DOXYCYCLINE HYCLATE. [Suspect]
     Active Substance: DOXYCYCLINE HYCLATE
     Indication: SCLEROTHERAPY
     Dosage: 80 MG, 3 DIFFERENT INSTILLATIONS

REACTIONS (4)
  - Product use issue [Unknown]
  - Aspiration [Recovered/Resolved]
  - Horner^s syndrome [Recovering/Resolving]
  - Product use in unapproved indication [Unknown]
